FAERS Safety Report 17319530 (Version 1)
Quarter: 2020Q1

REPORT INFORMATION
  Report Type: Spontaneous
  Country: US (occurrence: US)
  Receive Date: 20200125
  Receipt Date: 20200125
  Transmission Date: 20200409
  Serious: No
  Sender: FDA-Public Use
  Company Number: US-UNITED THERAPEUTICS-UNT-2020-000904

PATIENT
  Age: 51 Year
  Sex: Female
  Weight: 109.3 kg

DRUGS (2)
  1. REMODULIN [Suspect]
     Active Substance: TREPROSTINIL
     Indication: PULMONARY ARTERIAL HYPERTENSION
     Dosage: 0.191 ?G/KG, CONTINUING
     Route: 041
     Dates: start: 20090130
  2. DILTIAZEM. [Concomitant]
     Active Substance: DILTIAZEM
     Indication: PRODUCT USED FOR UNKNOWN INDICATION
     Dosage: UNK
     Route: 065

REACTIONS (4)
  - Pain in jaw [Unknown]
  - Hyperhidrosis [Unknown]
  - Syncope [Unknown]
  - Accidental overdose [Unknown]

NARRATIVE: CASE EVENT DATE: 201912
